FAERS Safety Report 6998836-6 (Version None)
Quarter: 2010Q3

REPORT INFORMATION
  Report Type: 
  Country: None (occurrence: None)
  Receive Date: 20100920
  Receipt Date: 20070613
  Transmission Date: 20110219
  Serious: Yes (Hospitalization)
  Sender: FDA-Public Use
  Company Number: US-ASTRAZENECA-2006UW11265

PATIENT
  Age: 478 Month
  Sex: Female
  Weight: 103.9 kg

DRUGS (8)
  1. SEROQUEL [Suspect]
     Indication: INSOMNIA
     Dosage: 200 TO 300 MG
     Route: 048
     Dates: start: 20020101
  2. SEROQUEL [Suspect]
     Dosage: 25-800MG
     Route: 048
     Dates: start: 20030724
  3. COLAZAPAN [Suspect]
     Route: 065
  4. MIRAZAPAN [Suspect]
     Route: 065
  5. SYNTHROID [Concomitant]
     Route: 048
     Dates: start: 20030619
  6. CYMBALTA [Concomitant]
     Dosage: 30-90MG
     Route: 048
     Dates: start: 20041026
  7. LISINOPRIL [Concomitant]
     Route: 048
     Dates: start: 20050613
  8. RISPERDAL [Concomitant]
     Indication: PSYCHOTIC DISORDER
     Dosage: 1-3MG
     Route: 048
     Dates: start: 20041026

REACTIONS (3)
  - DIABETES MELLITUS [None]
  - DIABETES MELLITUS INADEQUATE CONTROL [None]
  - TYPE 2 DIABETES MELLITUS [None]
